FAERS Safety Report 16687121 (Version 2)
Quarter: 2021Q1

REPORT INFORMATION
  Report Type: Report from Study
  Country: GB (occurrence: GB)
  Receive Date: 20190809
  Receipt Date: 20210317
  Transmission Date: 20210419
  Serious: Yes (Other)
  Sender: FDA-Public Use
  Company Number: GB-KARYOPHARM-2018KPT000605

PATIENT
  Age: 70 Year
  Sex: Female
  Weight: 63.4 kg

DRUGS (24)
  1. BORTEZOMIB. [Suspect]
     Active Substance: BORTEZOMIB
     Indication: PLASMA CELL MYELOMA
     Dosage: 1.3 MG/M2, WEEKLY
     Route: 042
     Dates: start: 20180416, end: 20180910
  2. DEXAMETHASONE. [Suspect]
     Active Substance: DEXAMETHASONE
     Dosage: 12 MG, 2X/WEEK
     Route: 048
     Dates: start: 20180820, end: 20180917
  3. LERCANIDIPINE ACTAVIS [Concomitant]
     Active Substance: LERCANIDIPINE HYDROCHLORIDE
     Indication: HYPERTENSION
     Dosage: 10 MG, QD
     Route: 048
     Dates: start: 2015
  4. FUROSEMIDE ACCORD [Concomitant]
     Active Substance: FUROSEMIDE
     Dosage: 40 MG, QD
     Route: 048
     Dates: start: 20181016
  5. TAZOCIN [Concomitant]
     Active Substance: PIPERACILLIN SODIUM\TAZOBACTAM SODIUM
     Indication: ADVERSE EVENT
     Dosage: 4.5 G, SINGLE
     Route: 042
     Dates: start: 20181019, end: 20181019
  6. SELINEXOR [Suspect]
     Active Substance: SELINEXOR
     Dosage: 80 MG, WEEKLY
     Route: 048
     Dates: start: 20180820
  7. ONDANSETRON 1 A PHARMA [Concomitant]
     Indication: ADVERSE EVENT
     Dosage: 8 MG, BID
     Route: 048
     Dates: start: 20180709
  8. LOPERAMIDE ALMUS [Concomitant]
     Indication: ADVERSE EVENT
     Dosage: 2 MG, PRN
     Route: 048
     Dates: start: 20180720
  9. RIVAROXABANUM [Concomitant]
     Active Substance: RIVAROXABAN
     Indication: ATRIAL FIBRILLATION
     Dosage: 10 MG, QD
     Route: 048
     Dates: start: 20181001
  10. SELINEXOR [Suspect]
     Active Substance: SELINEXOR
     Indication: PLASMA CELL MYELOMA
     Dosage: 100 MG, WEEKLY
     Route: 048
     Dates: start: 20180416, end: 20180810
  11. LANSOPRAZOLE ABBOTT [Concomitant]
     Indication: ADVERSE EVENT
     Dosage: 15 MG, QD
     Route: 048
     Dates: start: 20180709
  12. DEXAMETHASONE. [Suspect]
     Active Substance: DEXAMETHASONE
     Indication: PLASMA CELL MYELOMA
     Dosage: 20 MG, 2X/WEEK
     Route: 048
     Dates: start: 20180416, end: 20180724
  13. DEXAMETHASONE. [Suspect]
     Active Substance: DEXAMETHASONE
     Dosage: 10 MG, 2X/WEEK
     Route: 048
     Dates: start: 20180918
  14. ACICLOVIR ^ALPHARMA^ [Concomitant]
     Indication: PROPHYLAXIS
     Dosage: 200 MG, TID
     Route: 048
     Dates: start: 20180416
  15. ZOLEDRONIC ACID ^NICHI IKO^ [Concomitant]
     Indication: PROPHYLAXIS
     Dosage: 4 MG, 1X/12 WEEKS
     Route: 042
     Dates: start: 20180424
  16. FUROSEMIDE ACCORD [Concomitant]
     Active Substance: FUROSEMIDE
     Indication: OEDEMA PERIPHERAL
     Dosage: 40 MG, UNK
     Dates: start: 20180730
  17. FUROSEMIDE ACCORD [Concomitant]
     Active Substance: FUROSEMIDE
     Dosage: 20 MG, QD
     Route: 048
     Dates: start: 20181001, end: 20181015
  18. BISOPROLOL 1A PHARMA [Concomitant]
     Active Substance: BISOPROLOL
     Indication: HYPERTENSION
     Dosage: 5 MG, QD
     Route: 048
     Dates: start: 2015
  19. PARACETAMOL [Concomitant]
     Active Substance: ACETAMINOPHEN
     Indication: ADVERSE EVENT
     Dosage: 1 G, PRN
     Route: 048
     Dates: start: 20180702
  20. ANUSOL HC [Concomitant]
     Active Substance: HYDROCORTISONE
     Indication: ADVERSE EVENT
     Dosage: 1 APPLICATION, UNK
     Route: 061
     Dates: start: 20180716
  21. LOPERAMIDE ALMUS [Concomitant]
     Dosage: 2 MG, QID
     Route: 048
     Dates: start: 20181021, end: 20181022
  22. BORTEZOMIB. [Suspect]
     Active Substance: BORTEZOMIB
     Dosage: 1 MG/M2, WEEKLY
     Route: 042
     Dates: start: 20180917
  23. AUGMENTIN BD [Concomitant]
     Active Substance: AMOXICILLIN\CLAVULANIC ACID
     Indication: ADVERSE EVENT
     Dosage: 625 MG, TID
     Route: 048
     Dates: start: 20181019
  24. CLARITHROMYCIN. [Concomitant]
     Active Substance: CLARITHROMYCIN
     Indication: ADVERSE EVENT
     Dosage: 500 MG, BID
     Route: 048
     Dates: start: 20181022

REACTIONS (2)
  - Cataract [Recovered/Resolved]
  - Cataract [Recovered/Resolved]

NARRATIVE: CASE EVENT DATE: 20181106
